FAERS Safety Report 4780551-0 (Version None)
Quarter: 2005Q3

REPORT INFORMATION
  Report Type: 
  Country: None (occurrence: None)
  Receive Date: 20050914
  Receipt Date: 20050426
  Transmission Date: 20060218
  Serious: Yes (Hospitalization)
  Sender: FDA-Public Use
  Company Number: 163-20785-05040520

PATIENT
  Age: 56 Year
  Sex: Male
  Weight: 92.5338 kg

DRUGS (6)
  1. THALOMID [Suspect]
     Indication: MULTIPLE MYELOMA
     Dosage: 100 MG, ORAL; 50 MG, AT BEDTIME, ORAL
     Route: 048
     Dates: start: 20010906, end: 20020508
  2. THALOMID [Suspect]
     Indication: MULTIPLE MYELOMA
     Dosage: 100 MG, ORAL; 50 MG, AT BEDTIME, ORAL
     Route: 048
     Dates: start: 20020610
  3. DOXIL [Suspect]
     Indication: MULTIPLE MYELOMA
     Dosage: 85 MG
     Dates: start: 20010906, end: 20020508
  4. VINCRISTINE [Suspect]
     Indication: MULTIPLE MYELOMA
     Dates: start: 20010906, end: 20011101
  5. DECADRON [Suspect]
     Indication: MULTIPLE MYELOMA
     Dosage: 40 MG, DAILY X 4, ORAL
     Route: 048
     Dates: start: 20010906, end: 20020508
  6. PREDNISONE [Suspect]
     Indication: MULTIPLE MYELOMA
     Dosage: 50 MG, QOD
     Dates: start: 20020610

REACTIONS (1)
  - ROTATOR CUFF SYNDROME [None]
